FAERS Safety Report 11411377 (Version 1)
Quarter: 2015Q3

REPORT INFORMATION
  Report Type: Spontaneous
  Country: US (occurrence: US)
  Receive Date: 20150821
  Receipt Date: 20150821
  Transmission Date: 20151125
  Serious: No
  Sender: FDA-Public Use
  Company Number: US-ELI_LILLY_AND_COMPANY-US201006006040

PATIENT
  Age: 74 Year
  Sex: Female

DRUGS (3)
  1. HUMULIN N [Suspect]
     Active Substance: INSULIN HUMAN
     Indication: DIABETES MELLITUS
     Dosage: 46 U, 2/D
  2. PREDNISONE. [Concomitant]
     Active Substance: PREDNISONE
     Indication: BONE DISORDER
     Dosage: 10 MG, UNK
  3. DECADRON [Concomitant]
     Active Substance: DEXAMETHASONE
     Dosage: UNK, UNK
     Route: 030
     Dates: start: 20100621, end: 20100621

REACTIONS (3)
  - Blood glucose decreased [Recovered/Resolved]
  - Tremor [Recovered/Resolved]
  - Blood glucose increased [Not Recovered/Not Resolved]

NARRATIVE: CASE EVENT DATE: 20100522
